FAERS Safety Report 4909572-1 (Version None)
Quarter: 2006Q1

REPORT INFORMATION
  Report Type: 
  Country: None (occurrence: None)
  Receive Date: 20060213
  Receipt Date: 20051031
  Transmission Date: 20060701
  Serious: Yes (Hospitalization)
  Sender: FDA-Public Use
  Company Number: US-MERCK-0511USA00301

PATIENT
  Age: 57 Year
  Sex: Female
  Weight: 125 kg

DRUGS (7)
  1. VIOXX [Suspect]
     Indication: ARTHRALGIA
     Route: 048
     Dates: start: 20030403, end: 20030801
  2. HUMULIN [Concomitant]
     Route: 065
  3. TEGRETOL [Concomitant]
     Indication: SCIATICA
     Route: 065
  4. QUININE SULFATE [Concomitant]
     Indication: MUSCLE SPASMS
     Route: 065
  5. ASPIRIN [Concomitant]
     Route: 065
     Dates: start: 20000101, end: 20050118
  6. CLONIDINE [Concomitant]
     Indication: HYPERTENSION
     Route: 065
     Dates: start: 19980101
  7. CALCIUM (UNSPECIFIED) [Concomitant]
     Route: 065

REACTIONS (3)
  - CEREBROVASCULAR ACCIDENT [None]
  - DIABETES MELLITUS [None]
  - HYPERTENSION [None]
